FAERS Safety Report 11300809 (Version 1)
Quarter: 2015Q3

REPORT INFORMATION
  Report Type: Spontaneous
  Country: US (occurrence: US)
  Receive Date: 20150722
  Receipt Date: 20150722
  Transmission Date: 20151125
  Serious: No
  Sender: FDA-Public Use
  Company Number: US-ELI_LILLY_AND_COMPANY-US201201007077

PATIENT
  Sex: Male
  Weight: 284 kg

DRUGS (2)
  1. GENOTROPIN [Concomitant]
     Active Substance: SOMATROPIN
  2. HUMATROPE [Suspect]
     Active Substance: SOMATROPIN
     Dosage: 0.3 MG, MG
     Route: 058
     Dates: start: 20070115

REACTIONS (3)
  - Type 2 diabetes mellitus [Unknown]
  - Application site erythema [Recovered/Resolved]
  - Dry skin [Recovered/Resolved]
